FAERS Safety Report 25320645 (Version 3)
Quarter: 2025Q2

REPORT INFORMATION
  Report Type: Report from Study
  Country: US (occurrence: US)
  Receive Date: 20250515
  Receipt Date: 20250609
  Transmission Date: 20250717
  Serious: No
  Sender: MALLINCKRODT
  Company Number: US-MALLINCKRODT-MNK202502882

PATIENT
  Age: 71 Year
  Sex: Female

DRUGS (1)
  1. CORTICOTROPIN [Suspect]
     Active Substance: CORTICOTROPIN
     Indication: Multiple sclerosis
     Dosage: 80 UNITS
     Route: 058
     Dates: start: 20250502, end: 20250509

REACTIONS (7)
  - Micturition urgency [Unknown]
  - Visual impairment [Unknown]
  - Eye movement disorder [Unknown]
  - Swelling [Unknown]
  - Peripheral swelling [Not Recovered/Not Resolved]
  - Injection site bruising [Unknown]
  - Swelling face [Unknown]

NARRATIVE: CASE EVENT DATE: 20250501
